FAERS Safety Report 15160187 (Version 1)
Quarter: 2018Q3

REPORT INFORMATION
  Report Type: Spontaneous
  Country: US (occurrence: US)
  Receive Date: 20180621
  Receipt Date: 20180621
  Transmission Date: 20181010
  Serious: No
  Sender: FDA-Public Use
  Company Number: None

PATIENT
  Age: 45 Year
  Sex: Female
  Weight: 65.77 kg

DRUGS (3)
  1. MIRENA [Suspect]
     Active Substance: LEVONORGESTREL
     Dates: start: 20120611
  2. XANAX [Concomitant]
     Active Substance: ALPRAZOLAM
  3. PROZAC [Concomitant]
     Active Substance: FLUOXETINE HYDROCHLORIDE

REACTIONS (4)
  - Uterine haemorrhage [None]
  - Hysterectomy [None]
  - Bacterial infection [None]
  - Abortion spontaneous [None]

NARRATIVE: CASE EVENT DATE: 20130812
